FAERS Safety Report 8766895 (Version 2)
Quarter: 2012Q4

REPORT INFORMATION
  Report Type: 
  Country: US (occurrence: US)
  Receive Date: 20120904
  Receipt Date: 20120920
  Transmission Date: 20130627
  Serious: Yes (Other)
  Sender: FDA-Public Use
  Company Number: US-PFIZER INC-2012214058

PATIENT
  Age: 75 Year
  Sex: Female
  Weight: 54.42 kg

DRUGS (5)
  1. LYRICA [Suspect]
     Indication: SCIATIC NERVE NEUROPATHY
     Dosage: one capsule in the morning and two capsules at night
     Route: 048
     Dates: start: 201208
  2. LETROZOLE [Concomitant]
     Indication: BREAST CANCER FEMALE
     Dosage: 2.5 mg, daily
  3. IRBESARTAN [Concomitant]
     Indication: THYROID DISORDER
     Dosage: 150 mg, daily
  4. LANSOPRAZOLE [Concomitant]
     Indication: DYSPEPSIA
     Dosage: 30 mg, daily
  5. LANSOPRAZOLE [Concomitant]
     Indication: DYSPEPSIA

REACTIONS (3)
  - Convulsion [Not Recovered/Not Resolved]
  - Sciatic nerve neuropathy [Not Recovered/Not Resolved]
  - Pain [Not Recovered/Not Resolved]
